FAERS Safety Report 5078646-X (Version None)
Quarter: 2006Q3

REPORT INFORMATION
  Report Type: 
  Country: None (occurrence: None)
  Receive Date: 20060810
  Receipt Date: 20060810
  Transmission Date: 20061208
  Serious: No
  Sender: FDA-Public Use
  Company Number: None

PATIENT

DRUGS (3)
  1. TRIMETHOBENZAMIDE HCL [Suspect]
     Indication: NAUSEA
     Dosage: 200MG      IM
     Route: 030
     Dates: start: 20060809, end: 20060809
  2. TRIMETHOBENZAMIDE HCL [Suspect]
     Indication: VOMITING
     Dosage: 200MG      IM
     Route: 030
     Dates: start: 20060809, end: 20060809
  3. MIDAZOLAM HCL [Suspect]
     Indication: SEDATION
     Dosage: 2MG    IV
     Route: 042

REACTIONS (1)
  - CIRCUMSTANCE OR INFORMATION CAPABLE OF LEADING TO MEDICATION ERROR [None]
